FAERS Safety Report 18343923 (Version 1)
Quarter: 2020Q4

REPORT INFORMATION
  Report Type: Spontaneous
  Country: US (occurrence: US)
  Receive Date: 20201004
  Receipt Date: 20201004
  Transmission Date: 20210114
  Serious: No
  Sender: FDA-Public Use
  Company Number: None

PATIENT
  Age: 51 Year
  Sex: Female
  Weight: 121 kg

DRUGS (2)
  1. NOREPINEPHRINE. [Suspect]
     Active Substance: NOREPINEPHRINE
  2. BD ALARIS LV PUMP [Suspect]
     Active Substance: DEVICE

REACTIONS (2)
  - Device malfunction [None]
  - Blood pressure increased [None]

NARRATIVE: CASE EVENT DATE: 20200912
